FAERS Safety Report 10483542 (Version 2)
Quarter: 2014Q4

REPORT INFORMATION
  Report Type: Spontaneous
  Country: JP (occurrence: None)
  Receive Date: 20140926
  Receipt Date: 20141028
  Transmission Date: 20150528
  Serious: Yes (Other)
  Sender: FDA-Public Use
  Company Number: 2014-20362

PATIENT
  Age: 66 Year
  Sex: Male

DRUGS (13)
  1. TRAVOPROST (TRAVOPROST) [Concomitant]
  2. MIKELAN (CARTEOLOL HYROCHLORIDE) [Concomitant]
  3. EYLEA [Suspect]
     Active Substance: AFLIBERCEPT
     Indication: RETINAL VEIN OCCLUSION
     Route: 031
     Dates: start: 20140819, end: 20140819
  4. FUROSEMIDE. [Concomitant]
     Active Substance: FUROSEMIDE
  5. JANUVIA [Concomitant]
     Active Substance: SITAGLIPTIN PHOSPHATE
  6. GLIMEPRIDE [Concomitant]
     Active Substance: GLIMEPIRIDE
  7. XARELTO [Concomitant]
     Active Substance: RIVAROXABAN
  8. BRIMONIDINE TARTRATE (BRIMONIDINE TARTRATE) [Concomitant]
     Active Substance: BRIMONIDINE TARTRATE
  9. DIGOXIN. [Concomitant]
     Active Substance: DIGOXIN
  10. BLOPRESS (CANDESARTAN CILEXETIL) [Concomitant]
     Active Substance: CANDESARTAN CILEXETIL
  11. INSULIN (INSULIN) [Concomitant]
     Active Substance: INSULIN NOS
  12. ARTIST (CARVEDILOL) (CARVEDILOL) [Concomitant]
     Active Substance: CARVEDILOL
  13. ZOPICLONE (ZOPICLONE) [Concomitant]
     Active Substance: ZOPICLONE

REACTIONS (1)
  - Ocular ischaemic syndrome [None]

NARRATIVE: CASE EVENT DATE: 20140826
